FAERS Safety Report 24034337 (Version 1)
Quarter: 2024Q3

REPORT INFORMATION
  Report Type: Report from Study
  Country: US (occurrence: US)
  Receive Date: 20240701
  Receipt Date: 20240701
  Transmission Date: 20241017
  Serious: No
  Sender: ROCHE
  Company Number: US-ROCHE-3534864

PATIENT
  Age: 14 Month
  Sex: Male
  Weight: 9.52 kg

DRUGS (1)
  1. EVRYSDI [Suspect]
     Active Substance: RISDIPLAM
     Indication: Spinal muscular atrophy
     Dosage: 2.6ML (1.95MG)
     Route: 048

REACTIONS (1)
  - Weight decreased [Unknown]
